FAERS Safety Report 5857637-2 (Version None)
Quarter: 2008Q3

REPORT INFORMATION
  Report Type: 
  Country: None (occurrence: None)
  Receive Date: 20080818
  Receipt Date: 20080612
  Transmission Date: 20090109
  Serious: No
  Sender: FDA-Public Use
  Company Number: WAES 0806USA02514

PATIENT
  Age: 73 Year
  Sex: Male

DRUGS (6)
  1. JANUVIA [Suspect]
     Indication: BLOOD PRESSURE INCREASED
     Dosage: 100 MG/DAILY/PO
     Route: 048
     Dates: start: 20070901, end: 20080523
  2. CRESTOR [Concomitant]
  3. LASIX [Concomitant]
  4. LOPRESSOR [Concomitant]
  5. AMLODIPINE BESYLATE [Concomitant]
  6. LISINOPRIL [Concomitant]

REACTIONS (1)
  - BLOOD PRESSURE INCREASED [None]
